FAERS Safety Report 21212906 (Version 4)
Quarter: 2022Q4

REPORT INFORMATION
  Report Type: Spontaneous
  Country: FR (occurrence: FR)
  Receive Date: 20220815
  Receipt Date: 20221123
  Transmission Date: 20230112
  Serious: Yes (Congenital Anomaly, Other)
  Sender: FDA-Public Use
  Company Number: FR-VERTEX PHARMACEUTICALS-2022-011929

PATIENT
  Sex: Female
  Weight: 3 kg

DRUGS (14)
  1. ELEXACAFTOR\IVACAFTOR\TEZACAFTOR [Suspect]
     Active Substance: ELEXACAFTOR\IVACAFTOR\TEZACAFTOR
     Indication: Cystic fibrosis
     Dosage: 2 TABS (75 MG IVA/ 50 MG TEZA/ 100 MG ELEXA)
     Route: 048
     Dates: start: 20210724, end: 20210909
  2. ELEXACAFTOR\IVACAFTOR\TEZACAFTOR [Suspect]
     Active Substance: ELEXACAFTOR\IVACAFTOR\TEZACAFTOR
     Dosage: 2 TABS (75 MG IVA/ 50 MG TEZA/ 100 MG ELEXA)
     Route: 048
     Dates: start: 20211002, end: 20220507
  3. KALYDECO [Suspect]
     Active Substance: IVACAFTOR
     Indication: Cystic fibrosis
     Dosage: 1 TAB
     Route: 048
     Dates: start: 20210724, end: 20210909
  4. KALYDECO [Suspect]
     Active Substance: IVACAFTOR
     Dosage: 1 TAB IN PM
     Route: 048
     Dates: start: 20211002, end: 20220507
  5. VITAMIN A [Concomitant]
     Active Substance: VITAMIN A
     Indication: Cystic fibrosis
     Dosage: 2 DOSAGE FORM, QD
     Dates: start: 20210813, end: 20220507
  6. AUGMENTIN [Concomitant]
     Active Substance: AMOXICILLIN\CLAVULANATE POTASSIUM
     Indication: Bronchitis
     Dosage: 1 GRAM, TID
     Dates: start: 20220322, end: 20220329
  7. AUGMENTIN [Concomitant]
     Active Substance: AMOXICILLIN\CLAVULANATE POTASSIUM
     Dosage: 1 GRAM, TID
     Route: 064
     Dates: start: 20211123, end: 20211130
  8. ALBUTEROL [Concomitant]
     Active Substance: ALBUTEROL
     Indication: Cystic fibrosis
     Dosage: 5 MILLIGRAM, BID
     Dates: start: 20210813, end: 20220507
  9. CREON [Concomitant]
     Active Substance: PANCRELIPASE AMYLASE\PANCRELIPASE LIPASE\PANCRELIPASE PROTEASE
     Indication: Cystic fibrosis
     Dosage: 30000 INTERNATIONAL UNIT, QD
     Dates: start: 20210813, end: 20220507
  10. CHOLECALCIFEROL [Concomitant]
     Active Substance: CHOLECALCIFEROL
     Indication: Cystic fibrosis
     Dosage: FOR TWO MONTHS THEN 1/ MONTH
     Dates: start: 20210813, end: 20220507
  11. ZITHROMAX [Concomitant]
     Active Substance: AZITHROMYCIN DIHYDRATE
     Indication: Cystic fibrosis
     Dosage: 5 DAYS / 7
     Dates: start: 20210813, end: 20220507
  12. SERETIDE [Concomitant]
     Active Substance: FLUTICASONE PROPIONATE\SALMETEROL XINAFOATE
     Indication: Cystic fibrosis
     Dates: start: 20210813, end: 20220507
  13. .ALPHA.-TOCOPHEROL ACETATE, D- [Concomitant]
     Active Substance: .ALPHA.-TOCOPHEROL ACETATE, D-
     Indication: Cystic fibrosis
     Dosage: 500 MG SOFT CAPSULE; 500 MG *3/ D
     Route: 064
     Dates: start: 20210813, end: 20220507
  14. PULMOZYME [Concomitant]
     Active Substance: DORNASE ALFA
     Indication: Cystic fibrosis
     Dosage: 2500 U/ 2.5 ML, NEBULIZER SOL FOR INH IN AMPOULE
     Dates: start: 20210813, end: 20220507

REACTIONS (4)
  - Deafness bilateral [Not Recovered/Not Resolved]
  - Fissure of tongue, congenital [Not Recovered/Not Resolved]
  - Dacryostenosis congenital [Not Recovered/Not Resolved]
  - Gastrooesophageal reflux disease [Not Recovered/Not Resolved]

NARRATIVE: CASE EVENT DATE: 20220722
